FAERS Safety Report 20376960 (Version 2)
Quarter: 2022Q1

REPORT INFORMATION
  Report Type: Report from Study
  Country: CA (occurrence: CA)
  Receive Date: 20220125
  Receipt Date: 20220131
  Transmission Date: 20220423
  Serious: Yes (Other)
  Sender: FDA-Public Use
  Company Number: CA-UCBSA-2022002703

PATIENT
  Age: 19 Year
  Sex: Male

DRUGS (5)
  1. BRIVARACETAM [Suspect]
     Active Substance: BRIVARACETAM
     Indication: Generalised tonic-clonic seizure
     Dosage: 25MG
     Dates: start: 202201, end: 202201
  2. BRIVARACETAM [Suspect]
     Active Substance: BRIVARACETAM
     Indication: Partial seizures
     Dosage: 50 MILLIGRAM, 2X/DAY (BID)
     Dates: start: 202201, end: 202201
  3. BRIVARACETAM [Suspect]
     Active Substance: BRIVARACETAM
     Indication: Off label use
     Dosage: 50 MILLIGRAM, 2X/DAY (BID)
  4. BRIVARACETAM [Suspect]
     Active Substance: BRIVARACETAM
     Indication: Petit mal epilepsy
     Dosage: 10MG
     Dates: start: 20220109
  5. BRIVARACETAM [Suspect]
     Active Substance: BRIVARACETAM
     Indication: Epilepsy

REACTIONS (3)
  - Seizure [Unknown]
  - Epilepsy [Unknown]
  - Off label use [Unknown]

NARRATIVE: CASE EVENT DATE: 20220101
